FAERS Safety Report 25866075 (Version 3)
Quarter: 2025Q4

REPORT INFORMATION
  Report Type: Report from Study
  Country: EU (occurrence: EU)
  Receive Date: 20250930
  Receipt Date: 20251125
  Transmission Date: 20260119
  Serious: Yes (Other)
  Sender: MYLAN
  Company Number: EU-GLAXOSMITHKLINE INC-ES2025EME112446

PATIENT
  Age: 79 Year
  Sex: Male

DRUGS (8)
  1. POMALIDOMIDE [Suspect]
     Active Substance: POMALIDOMIDE
     Indication: Product used for unknown indication
     Dosage: UNK
  2. POMALIDOMIDE [Suspect]
     Active Substance: POMALIDOMIDE
     Dosage: UNK
     Route: 065
  3. POMALIDOMIDE [Suspect]
     Active Substance: POMALIDOMIDE
     Dosage: UNK
     Route: 065
  4. POMALIDOMIDE [Suspect]
     Active Substance: POMALIDOMIDE
     Dosage: UNK
  5. BELANTAMAB MAFODOTIN [Suspect]
     Active Substance: BELANTAMAB MAFODOTIN
     Indication: Plasma cell myeloma
     Dosage: UNK
  6. BELANTAMAB MAFODOTIN [Suspect]
     Active Substance: BELANTAMAB MAFODOTIN
     Dosage: UNK
     Route: 065
  7. BELANTAMAB MAFODOTIN [Suspect]
     Active Substance: BELANTAMAB MAFODOTIN
     Dosage: UNK
     Route: 065
  8. BELANTAMAB MAFODOTIN [Suspect]
     Active Substance: BELANTAMAB MAFODOTIN
     Dosage: UNK

REACTIONS (5)
  - Blindness [Recovering/Resolving]
  - Corneal epithelial microcysts [Not Recovered/Not Resolved]
  - Foreign body sensation in eyes [Recovering/Resolving]
  - Decreased immune responsiveness [Unknown]
  - Pyrexia [Recovered/Resolved]

NARRATIVE: CASE EVENT DATE: 20250622
